FAERS Safety Report 21407866 (Version 1)
Quarter: 2022Q4

REPORT INFORMATION
  Report Type: Spontaneous
  Country: US (occurrence: US)
  Receive Date: 20221004
  Receipt Date: 20221004
  Transmission Date: 20230113
  Serious: Yes (Hospitalization, Other)
  Sender: FDA-Public Use
  Company Number: US-009507513-1301USA010919

PATIENT
  Sex: Female
  Weight: 60.45 kg

DRUGS (7)
  1. FOSAMAX [Suspect]
     Active Substance: ALENDRONATE SODIUM
     Indication: Osteoporosis
     Dosage: 70 MG, QW
     Route: 048
     Dates: start: 200210, end: 201104
  2. FOSAMAX [Suspect]
     Active Substance: ALENDRONATE SODIUM
     Indication: Osteoarthritis
     Dosage: TAKE ONE BY MOUTH EVERY WEEK
     Route: 048
     Dates: start: 2011
  3. ALENDRONATE SODIUM [Suspect]
     Active Substance: ALENDRONATE SODIUM
     Indication: Osteoporosis
     Dosage: 70 MG, QW
     Route: 048
     Dates: start: 200802, end: 201102
  4. VITAMINS NOS [Concomitant]
     Active Substance: VITAMINS
     Dosage: 1 DF, QD
     Dates: start: 1997
  5. CALCIUM [Concomitant]
     Active Substance: CALCIUM
     Dosage: 1200 MG, QD
     Dates: start: 1990
  6. OMEPRAZOLE [Concomitant]
     Active Substance: OMEPRAZOLE
     Dosage: 20 MG, QD/TAKE ONE BY MOUTH ONE TIME PER DAY
     Route: 048
     Dates: start: 1980
  7. CHOLECALCIFEROL [Concomitant]
     Active Substance: CHOLECALCIFEROL
     Indication: Osteoarthritis

REACTIONS (21)
  - Intramedullary rod insertion [Unknown]
  - Rotator cuff repair [Unknown]
  - Knee arthroplasty [Unknown]
  - Cerebral ischaemia [Not Recovered/Not Resolved]
  - Cerebral atrophy [Unknown]
  - Hypothermia [Recovered/Resolved]
  - Femur fracture [Unknown]
  - Tooth extraction [Unknown]
  - Dental prosthesis user [Unknown]
  - Pain [Unknown]
  - Rotator cuff syndrome [Unknown]
  - Arthritis [Unknown]
  - Fall [Unknown]
  - Arthritis [Unknown]
  - Hypertension [Unknown]
  - Osteoarthritis [Unknown]
  - Osteopenia [Unknown]
  - Bone cyst [Unknown]
  - Anaemia [Unknown]
  - Pain in extremity [Recovered/Resolved]
  - Off label use [Unknown]

NARRATIVE: CASE EVENT DATE: 20040930
